FAERS Safety Report 13430894 (Version 1)
Quarter: 2017Q2

REPORT INFORMATION
  Report Type: Spontaneous
  Country: FR (occurrence: FR)
  Receive Date: 20170412
  Receipt Date: 20170412
  Transmission Date: 20170830
  Serious: Yes (Hospitalization, Other)
  Sender: FDA-Public Use
  Company Number: FR-PFIZER INC-2017150391

PATIENT
  Age: 87 Year
  Sex: Female

DRUGS (10)
  1. MOVICOL [Concomitant]
     Active Substance: POLYETHYLENE GLYCOL 3350\POTASSIUM CHLORIDE\SODIUM BICARBONATE\SODIUM CHLORIDE
  2. LAROXYL [Suspect]
     Active Substance: AMITRIPTYLINE
     Indication: NEURALGIA
     Dosage: 40 MG, DAILY
     Route: 048
     Dates: start: 20170303
  3. CORTANCYL [Concomitant]
     Active Substance: PREDNISONE
  4. LYRICA [Suspect]
     Active Substance: PREGABALIN
     Indication: NEURALGIA
     Dosage: 300 MG, DAILY
     Route: 048
     Dates: start: 20170303
  5. DOLIPRANE [Concomitant]
     Active Substance: ACETAMINOPHEN
  6. SKENAN [Concomitant]
     Active Substance: MORPHINE SULFATE
  7. ACTISKENAN [Concomitant]
     Active Substance: MORPHINE SULFATE
  8. INNOHEP [Concomitant]
     Active Substance: TINZAPARIN SODIUM
  9. ESOMEPRAZOLE MAGNESIUM. [Concomitant]
     Active Substance: ESOMEPRAZOLE MAGNESIUM
  10. ALPRAZOLAM. [Concomitant]
     Active Substance: ALPRAZOLAM

REACTIONS (3)
  - Interstitial lung disease [Unknown]
  - Drop attacks [Unknown]
  - Inflammation [Unknown]

NARRATIVE: CASE EVENT DATE: 20170306
